FAERS Safety Report 9006977 (Version 6)
Quarter: 2014Q1

REPORT INFORMATION
  Report Type: Report from Study
  Country: US (occurrence: US)
  Receive Date: 20130110
  Receipt Date: 20140108
  Transmission Date: 20141002
  Serious: Yes (Hospitalization)
  Sender: FDA-Public Use
  Company Number: US-EISAI INC-E7389-03424-CLI-US

PATIENT
  Age: 57 Year
  Sex: Female
  Weight: 256 kg

DRUGS (12)
  1. HALAVEN [Suspect]
     Indication: BREAST CANCER
     Route: 041
     Dates: start: 20121116, end: 20121211
  2. HALAVEN [Suspect]
     Route: 041
     Dates: start: 20130102
  3. RAMUCIRUMAB [Suspect]
     Indication: BREAST CANCER
     Route: 041
     Dates: start: 20121116
  4. ATIVAN [Concomitant]
     Dates: start: 20100709
  5. PERCOCET [Concomitant]
     Dates: start: 20120814
  6. JANUVIA [Concomitant]
  7. TENORMIN [Concomitant]
     Dates: start: 1991
  8. LISINOPRIL [Concomitant]
     Dates: start: 1991
  9. ACTOS [Concomitant]
     Dates: start: 1991
  10. BENICAR [Concomitant]
     Dates: start: 1991
  11. CYMBALTA [Concomitant]
     Dates: start: 20111118
  12. GLUCOTROL [Concomitant]
     Dates: start: 1991

REACTIONS (1)
  - Cellulitis [Recovering/Resolving]
